FAERS Safety Report 7576046-1 (Version None)
Quarter: 2011Q2

REPORT INFORMATION
  Report Type: 
  Country: None (occurrence: None)
  Receive Date: 20110628
  Receipt Date: 20110613
  Transmission Date: 20111010
  Serious: Yes (Hospitalization)
  Sender: FDA-Public Use
  Company Number: JP-BAYER-2011-014476

PATIENT
  Age: 77 Year
  Sex: Male

DRUGS (8)
  1. NEXAVAR [Suspect]
     Dosage: DAILY DOSE 400 MG
     Dates: start: 20110501
  2. NEXAVAR [Suspect]
     Dosage: 200 MG, BID
     Route: 048
     Dates: start: 20110105, end: 20110214
  3. NEXAVAR [Suspect]
     Dosage: 200 MG, QID
     Route: 048
     Dates: start: 20110215, end: 20110217
  4. DOGMATYL [Suspect]
     Indication: PARKINSONISM
     Route: 048
  5. NEXAVAR [Suspect]
     Indication: RENAL CELL CARCINOMA
     Dosage: 200 MG, QID
     Route: 048
     Dates: start: 20100215
  6. NEXAVAR [Suspect]
     Dosage: 200 MG, TID
     Route: 048
     Dates: start: 20110111, end: 20110214
  7. NEXAVAR [Suspect]
     Dosage: DAILY DOSE 600 MG
     Route: 048
     Dates: start: 20110502, end: 20110517
  8. NEXAVAR [Suspect]
     Dosage: UNK
     Route: 048
     Dates: start: 20110531

REACTIONS (3)
  - PALMAR-PLANTAR ERYTHRODYSAESTHESIA SYNDROME [None]
  - DIZZINESS [None]
  - FEELING ABNORMAL [None]
